FAERS Safety Report 4435441-X (Version None)
Quarter: 2004Q3

REPORT INFORMATION
  Report Type: 
  Country: None (occurrence: None)
  Receive Date: 20040826
  Receipt Date: 20040813
  Transmission Date: 20050211
  Serious: Yes (Hospitalization)
  Sender: FDA-Public Use
  Company Number: SP-2004-001809

PATIENT
  Age: 79 Year
  Sex: Female

DRUGS (16)
  1. CARVEDILOL [Suspect]
     Dates: start: 20040209
  2. FELODIPINE [Suspect]
     Dates: start: 20030704
  3. VOTUM 20 [Suspect]
     Indication: CARDIAC FAILURE
     Dosage: 20 MG QD PO
     Route: 048
     Dates: start: 20030425, end: 20040310
  4. VOTUM 20 [Suspect]
     Indication: HYPERTENSION
     Dosage: 20 MG QD PO
     Route: 048
     Dates: start: 20030425, end: 20040310
  5. DICLOFENAC [Suspect]
     Dates: start: 20011203
  6. THYRONAJOD [Concomitant]
  7. TOREM 20 [Concomitant]
  8. AMLO TAD 10 [Concomitant]
  9. NATRILIX [Concomitant]
  10. OLMESARTANMEDOXOMIL [Concomitant]
  11. DICLOFENAC [Concomitant]
  12. FELODIPIN [Concomitant]
  13. CARVEDILOL [Concomitant]
  14. TORSEMIDE [Concomitant]
  15. AMLODIPINE [Concomitant]
  16. INDAPAMIDE [Concomitant]

REACTIONS (1)
  - BLOOD CREATININE INCREASED [None]
